FAERS Safety Report 13387299 (Version 1)
Quarter: 2017Q1

REPORT INFORMATION
  Report Type: Spontaneous
  Country: US (occurrence: US)
  Receive Date: 20170330
  Receipt Date: 20170330
  Transmission Date: 20170429
  Serious: Yes (Other)
  Sender: FDA-Public Use
  Company Number: US-TEVA-752803USA

PATIENT
  Age: 4 Year
  Sex: Male

DRUGS (8)
  1. VITAMINS NOS [Concomitant]
     Active Substance: VITAMINS
     Route: 065
  2. SINGULAIR [Concomitant]
     Active Substance: MONTELUKAST SODIUM
     Indication: RESPIRATION ABNORMAL
     Route: 065
  3. ZYRTEC [Concomitant]
     Active Substance: CETIRIZINE HYDROCHLORIDE
     Indication: HYPERSENSITIVITY
     Route: 065
  4. IBUPROFEN. [Concomitant]
     Active Substance: IBUPROFEN
     Indication: PYREXIA
  5. IBUPROFEN. [Concomitant]
     Active Substance: IBUPROFEN
     Indication: HEADACHE
     Route: 065
  6. VENTOLIN [Concomitant]
     Active Substance: ALBUTEROL SULFATE
     Route: 065
  7. QVAR [Suspect]
     Active Substance: BECLOMETHASONE DIPROPIONATE
     Indication: COUGH
     Dosage: TWO PUFFS TWICE DAILY
     Route: 065
     Dates: start: 201601
  8. CLARITIN [Concomitant]
     Active Substance: LORATADINE
     Indication: HYPERSENSITIVITY
     Route: 065

REACTIONS (19)
  - Decreased appetite [Unknown]
  - Nasal discomfort [Unknown]
  - Feeling abnormal [Unknown]
  - Product use issue [Unknown]
  - Upper respiratory tract infection [Unknown]
  - Pharyngeal erythema [Unknown]
  - Rash [Unknown]
  - Lethargy [Unknown]
  - Respiration abnormal [Unknown]
  - Swollen tongue [Unknown]
  - Pain [Unknown]
  - Adverse event [Unknown]
  - Visual impairment [Unknown]
  - Throat irritation [Unknown]
  - Influenza [Unknown]
  - Micturition disorder [Unknown]
  - Asthenia [Unknown]
  - Pyrexia [Unknown]
  - Headache [Unknown]

NARRATIVE: CASE EVENT DATE: 20170217
